FAERS Safety Report 19976993 (Version 1)
Quarter: 2021Q4

REPORT INFORMATION
  Report Type: Spontaneous
  Country: CA (occurrence: CA)
  Receive Date: 20211021
  Receipt Date: 20211021
  Transmission Date: 20220304
  Serious: Yes (Other)
  Sender: FDA-Public Use
  Company Number: CA-ROCHE-2938588

PATIENT
  Age: 72 Year
  Sex: Female

DRUGS (14)
  1. ACTEMRA [Suspect]
     Active Substance: TOCILIZUMAB
     Indication: Rheumatoid arthritis
     Route: 042
  2. RITUXIMAB [Suspect]
     Active Substance: RITUXIMAB
     Indication: Rheumatoid arthritis
     Route: 042
  3. ACYCLOVIR [Concomitant]
     Active Substance: ACYCLOVIR
  4. BENADRYL [Concomitant]
     Active Substance: DIPHENHYDRAMINE HYDROCHLORIDE
  5. CALCIUM [Concomitant]
     Active Substance: CALCIUM
  6. CETIRIZINE HYDROCHLORIDE [Concomitant]
     Active Substance: CETIRIZINE HYDROCHLORIDE
  7. COLACE [Concomitant]
     Active Substance: DOCUSATE SODIUM
  8. FOLIC ACID [Concomitant]
     Active Substance: FOLIC ACID
  9. LEVOTHYROXINE SODIUM [Concomitant]
     Active Substance: LEVOTHYROXINE SODIUM
  10. LEVOTHYROXINE SODIUM [Concomitant]
     Active Substance: LEVOTHYROXINE SODIUM
  11. METHOTREXATE [Concomitant]
     Active Substance: METHOTREXATE
  12. METHYLPREDNISOLONE SODIUM SUCCINATE [Concomitant]
     Active Substance: METHYLPREDNISOLONE SODIUM SUCCINATE
  13. OMEGA-3 FATTY ACIDS [Concomitant]
     Active Substance: OMEGA-3 FATTY ACIDS
  14. TYLENOL [Concomitant]
     Active Substance: ACETAMINOPHEN

REACTIONS (4)
  - Bone density decreased [Unknown]
  - Cataract [Unknown]
  - Herpes simplex [Unknown]
  - Lichen planus [Unknown]
